FAERS Safety Report 4561191-5 (Version None)
Quarter: 2005Q1

REPORT INFORMATION
  Report Type: 
  Country: None (occurrence: None)
  Receive Date: 20050124
  Receipt Date: 20050113
  Transmission Date: 20050727
  Serious: Yes (Disabling)
  Sender: FDA-Public Use
  Company Number: 2005-00165

PATIENT
  Age: 81 Year
  Sex: Male
  Weight: 75 kg

DRUGS (4)
  1. FENTANYL CITRATE (WATSON LABORATORIES) (FENTANYL CITRATE) INJECTION, 5 [Suspect]
     Indication: PAIN
     Dosage: 44 MCG INFUSED OVER 8 HRS, EPIDURAL
     Route: 008
     Dates: start: 20040101
  2. LIDOCAINE HCL [Suspect]
     Indication: EPIDURAL ANAESTHESIA
     Dosage: 2ML (2%) BOLUS X 1, EPIDURAL
     Route: 008
     Dates: start: 20040101
  3. MORPHINE SULFATE (WATSON LABORATORIES) (MORPHINE SULFATE) INJECTION, 0 [Suspect]
     Indication: PAIN
     Dosage: 1 MG, BOLUS X 1, EPIDURAL
     Route: 008
     Dates: start: 20040101
  4. BUPIVACAINE (BUPIVACAINE) INJE [Suspect]
     Indication: PAIN
     Dosage: SEE IMAGE
     Route: 008
     Dates: start: 20040101

REACTIONS (3)
  - PARAPLEGIA [None]
  - PROCEDURAL COMPLICATION [None]
  - SPINAL CORD INJURY [None]
